FAERS Safety Report 17009316 (Version 1)
Quarter: 2019Q4

REPORT INFORMATION
  Report Type: Spontaneous
  Country: MY (occurrence: MY)
  Receive Date: 20191108
  Receipt Date: 20191108
  Transmission Date: 20200122
  Serious: Yes (Other)
  Sender: FDA-Public Use
  Company Number: MY-FRESENIUS KABI-FK201912354

PATIENT
  Age: 65 Year
  Sex: Male

DRUGS (3)
  1. TRANEXAMIC ACID (MANUFACTURER UNKNOWN) [Suspect]
     Active Substance: TRANEXAMIC ACID
     Indication: VASCULAR ACCESS SITE HAEMORRHAGE
     Route: 042
  2. VITAMIN K [Concomitant]
     Active Substance: PHYTONADIONE
     Indication: VASCULAR ACCESS SITE HAEMORRHAGE
     Route: 042
  3. TRANEXAMIC ACID (MANUFACTURER UNKNOWN) [Suspect]
     Active Substance: TRANEXAMIC ACID
     Dosage: 5 HOURS LATER
     Route: 042

REACTIONS (1)
  - Seizure [Recovered/Resolved]
